FAERS Safety Report 13358464 (Version 1)
Quarter: 2017Q1

REPORT INFORMATION
  Report Type: Spontaneous
  Country: US (occurrence: US)
  Receive Date: 20170322
  Receipt Date: 20170322
  Transmission Date: 20170429
  Serious: Yes (Other)
  Sender: FDA-Public Use
  Company Number: US-BEH-2017078935

PATIENT
  Sex: Female

DRUGS (1)
  1. ANTI-D IMMUNOGLOBULIN (INN) [Suspect]
     Active Substance: HUMAN RHO(D) IMMUNE GLOBULIN
     Indication: RHESUS INCOMPATIBILITY
     Dosage: UNK
     Route: 065
     Dates: start: 2013

REACTIONS (1)
  - Rhesus antibodies positive [Unknown]

NARRATIVE: CASE EVENT DATE: 2017
